FAERS Safety Report 24146934 (Version 1)
Quarter: 2024Q3

REPORT INFORMATION
  Report Type: Spontaneous
  Country: US (occurrence: US)
  Receive Date: 20240729
  Receipt Date: 20240729
  Transmission Date: 20241017
  Serious: Yes (Other)
  Sender: PFIZER
  Company Number: US-PFIZER INC-202400224000

PATIENT
  Age: 76 Year
  Sex: Female

DRUGS (1)
  1. TUKYSA [Suspect]
     Active Substance: TUCATINIB
     Dosage: 300 MG, TWICE DAILY
     Dates: start: 20240722

REACTIONS (4)
  - Muscle spasms [Unknown]
  - Pain [Unknown]
  - Pruritus [Unknown]
  - Dry skin [Unknown]
